FAERS Safety Report 6258268-5 (Version None)
Quarter: 2009Q3

REPORT INFORMATION
  Report Type: 
  Country: None (occurrence: None)
  Receive Date: 20090707
  Receipt Date: 20090701
  Transmission Date: 20100115
  Serious: Yes (Hospitalization)
  Sender: FDA-Public Use
  Company Number: US-BAYER-200916914NA

PATIENT
  Age: 32 Year
  Sex: Female
  Weight: 79 kg

DRUGS (2)
  1. MIRENA [Suspect]
     Indication: CONTRACEPTION
     Dosage: CONTINUOUS
     Route: 015
     Dates: start: 20070201, end: 20090323
  2. LAMICTAL, STOPPED TAKING ON 22-MAR-2009 [Concomitant]

REACTIONS (3)
  - ABORTION SPONTANEOUS [None]
  - ANTEPARTUM HAEMORRHAGE [None]
  - PREGNANCY WITH CONTRACEPTIVE DEVICE [None]
